FAERS Safety Report 5820770-5 (Version None)
Quarter: 2008Q3

REPORT INFORMATION
  Report Type: 
  Country: None (occurrence: None)
  Receive Date: 20080718
  Receipt Date: 20080718
  Transmission Date: 20090109
  Serious: Yes (Other)
  Sender: FDA-Public Use
  Company Number: None

PATIENT
  Sex: Female
  Weight: 72.5755 kg

DRUGS (1)
  1. ANTIVERT [Suspect]
     Indication: DIZZINESS
     Dosage: 1 TABLET  4 X DAILY
     Dates: start: 20080714, end: 20080716

REACTIONS (3)
  - INSOMNIA [None]
  - MUSCLE DISORDER [None]
  - PRURITUS [None]
